FAERS Safety Report 17956768 (Version 1)
Quarter: 2020Q2

REPORT INFORMATION
  Report Type: Spontaneous
  Country: FR (occurrence: FR)
  Receive Date: 20200629
  Receipt Date: 20200629
  Transmission Date: 20200714
  Serious: Yes (Disabling)
  Sender: FDA-Public Use
  Company Number: FR-ASTRAZENECA-2020SE75233

PATIENT
  Age: 6796 Day
  Sex: Female
  Weight: 108 kg

DRUGS (6)
  1. SYMBICORT [Concomitant]
     Active Substance: BUDESONIDE\FORMOTEROL FUMARATE DIHYDRATE
     Indication: ASTHMA
  2. KESTIN [Concomitant]
     Active Substance: EBASTINE
     Indication: ASTHMA
     Dosage: 2 TABLET DAILY
     Route: 048
  3. DYMISTA [Concomitant]
     Active Substance: AZELASTINE HYDROCHLORIDE\FLUTICASONE PROPIONATE
     Indication: ASTHMA
     Dosage: 2 PUFFS DAILY IN EACH NOSTRIL
  4. FASENRA [Suspect]
     Active Substance: BENRALIZUMAB
     Indication: ASTHMA
     Route: 058
     Dates: start: 20200316, end: 20200515
  5. BRICANYL [Concomitant]
     Active Substance: TERBUTALINE SULFATE
     Indication: ASTHMA
     Dosage: AT 3 TO 4 PUFFS DAILY
  6. INORIAL [Concomitant]
     Active Substance: BILASTINE
     Indication: ASTHMA
     Dosage: 2 TABLET DAILY
     Route: 048

REACTIONS (1)
  - Eczema [Not Recovered/Not Resolved]

NARRATIVE: CASE EVENT DATE: 20200320
